FAERS Safety Report 9217576 (Version 1)
Quarter: 2013Q2

REPORT INFORMATION
  Report Type: Spontaneous
  Country: US (occurrence: US)
  Receive Date: 20130408
  Receipt Date: 20130408
  Transmission Date: 20140414
  Serious: Yes (Death)
  Sender: FDA-Public Use
  Company Number: US-TEVA-395921USA

PATIENT
  Sex: Female
  Weight: 74 kg

DRUGS (3)
  1. ACTIQ [Suspect]
     Indication: HODGKIN^S DISEASE
     Route: 048
  2. ACTIQ [Suspect]
     Indication: BREAST CANCER
  3. HUMOLOG [Concomitant]

REACTIONS (1)
  - Death [Fatal]
